FAERS Safety Report 17307094 (Version 1)
Quarter: 2020Q1

REPORT INFORMATION
  Report Type: Spontaneous
  Country: CN (occurrence: CN)
  Receive Date: 20200123
  Receipt Date: 20200123
  Transmission Date: 20200409
  Serious: Yes (Hospitalization, Other)
  Sender: FDA-Public Use
  Company Number: CN-JUBILANT CADISTA PHARMACEUTICALS-2020JUB00022

PATIENT
  Age: 60 Year
  Sex: Female

DRUGS (3)
  1. PREDNISONE. [Suspect]
     Active Substance: PREDNISONE
     Indication: IMMUNE THROMBOCYTOPENIC PURPURA
     Route: 065
  2. METHYLPREDNISOLONE. [Suspect]
     Active Substance: METHYLPREDNISOLONE
     Indication: IMMUNE THROMBOCYTOPENIC PURPURA
     Dosage: 12 MG, 1X/DAY
     Route: 048
  3. DANAZOL. [Concomitant]
     Active Substance: DANAZOL
     Dosage: 100 MG, 1X/DAY
     Route: 065

REACTIONS (8)
  - Nocardiosis [Recovered/Resolved]
  - Staphylococcal bacteraemia [Recovered/Resolved]
  - Respiratory failure [Recovered/Resolved]
  - Hepatic function abnormal [Recovered/Resolved]
  - Panniculitis [Recovered/Resolved]
  - Jaundice [Recovered/Resolved]
  - Pericardial effusion [Recovered/Resolved]
  - Immunosuppression [Recovered/Resolved]
